FAERS Safety Report 18596101 (Version 15)
Quarter: 2025Q2

REPORT INFORMATION
  Report Type: Report from Study
  Country: DE (occurrence: DE)
  Receive Date: 20201209
  Receipt Date: 20250414
  Transmission Date: 20250716
  Serious: Yes (Hospitalization, Other)
  Sender: MYLAN
  Company Number: DE-ROCHE-2176591

PATIENT
  Age: 49 Year
  Sex: Female
  Weight: 78 kg

DRUGS (32)
  1. ATORVASTATIN [Suspect]
     Active Substance: ATORVASTATIN
     Indication: Blood cholesterol increased
  2. METFORMIN [Suspect]
     Active Substance: METFORMIN HYDROCHLORIDE
     Indication: Blood cholesterol increased
     Dosage: 1000 MILLIGRAM, BID
     Dates: end: 20190422
  3. METFORMIN [Suspect]
     Active Substance: METFORMIN HYDROCHLORIDE
     Dosage: 500 MILLIGRAM, BID
     Dates: start: 20190423
  4. METFORMIN [Suspect]
     Active Substance: METFORMIN HYDROCHLORIDE
     Dosage: 500 MILLIGRAM, BID
  5. OCREVUS [Suspect]
     Active Substance: OCRELIZUMAB
     Indication: Relapsing-remitting multiple sclerosis
  6. OCREVUS [Suspect]
     Active Substance: OCRELIZUMAB
  7. OCREVUS [Suspect]
     Active Substance: OCRELIZUMAB
  8. OCREVUS [Suspect]
     Active Substance: OCRELIZUMAB
  9. OCREVUS [Suspect]
     Active Substance: OCRELIZUMAB
  10. OCREVUS [Suspect]
     Active Substance: OCRELIZUMAB
  11. OCREVUS [Suspect]
     Active Substance: OCRELIZUMAB
  12. OCREVUS [Suspect]
     Active Substance: OCRELIZUMAB
     Dates: start: 20180808, end: 20231129
  13. COVID-19 VACCINE NOS [Suspect]
     Active Substance: COVID-19 VACCINE
     Indication: Product used for unknown indication
  14. PANTOPRAZOLE SODIUM [Concomitant]
     Active Substance: PANTOPRAZOLE SODIUM
     Indication: Gastrooesophageal reflux disease
  15. PANTOPRAZOLE SODIUM [Concomitant]
     Active Substance: PANTOPRAZOLE SODIUM
     Dosage: 20 MILLIGRAM, QD (EVERY 2-3 DAYS)
     Dates: start: 2011
  16. SODIUM CHLORIDE [Concomitant]
     Active Substance: SODIUM CHLORIDE
  17. ROSUVASTATIN [Concomitant]
     Active Substance: ROSUVASTATIN
     Dosage: UNK, QD
  18. FLUTICASONE PROPIONATE\SALMETEROL XINAFOATE [Concomitant]
     Active Substance: FLUTICASONE PROPIONATE\SALMETEROL XINAFOATE
     Indication: Asthma
     Dosage: 1 DOSAGE FORM, BID
  19. FLUTICASONE PROPIONATE\SALMETEROL XINAFOATE [Concomitant]
     Active Substance: FLUTICASONE PROPIONATE\SALMETEROL XINAFOATE
     Dosage: 550 MICROGRAM, BID
     Dates: start: 2011
  20. SIMVASTATIN [Concomitant]
     Active Substance: SIMVASTATIN
     Dosage: 20 MILLIGRAM, QD
     Dates: start: 20190823
  21. CLEMASTINE FUMARATE [Concomitant]
     Active Substance: CLEMASTINE FUMARATE
     Indication: Premedication
  22. IBUPROFEN [Concomitant]
     Active Substance: IBUPROFEN
  23. IBUPROFEN [Concomitant]
     Active Substance: IBUPROFEN
  24. LEVOTHYROXINE SODIUM\POTASSIUM IODIDE [Concomitant]
     Active Substance: LEVOTHYROXINE SODIUM\POTASSIUM IODIDE
     Indication: Hypothyroidism
     Dosage: 100 MICROGRAM, QD
     Dates: start: 2011
  25. LEVOTHYROXINE SODIUM\POTASSIUM IODIDE [Concomitant]
     Active Substance: LEVOTHYROXINE SODIUM\POTASSIUM IODIDE
     Dosage: 100 MICROGRAM, QD
  26. ALBUTEROL [Concomitant]
     Active Substance: ALBUTEROL
  27. ALBUTEROL [Concomitant]
     Active Substance: ALBUTEROL
  28. Apydan [Concomitant]
     Dosage: 600 MILLIGRAM, BID
     Dates: start: 20180724
  29. Apydan [Concomitant]
     Dosage: 600 MILLIGRAM, BID
  30. Apydan [Concomitant]
     Dosage: 600 MILLIGRAM, BID
  31. LEVETIRACETAM [Concomitant]
     Active Substance: LEVETIRACETAM
     Indication: Epilepsy
     Dosage: 1000 MILLIGRAM, BID
     Dates: start: 2017
  32. DOXYCYCLINE [Concomitant]
     Active Substance: DOXYCYCLINE

REACTIONS (53)
  - Type 2 diabetes mellitus [Unknown]
  - Blood glucose increased [Recovered/Resolved]
  - Basal cell carcinoma [Recovered/Resolved]
  - Multiple sclerosis relapse [Recovered/Resolved]
  - Lumbar vertebral fracture [Recovered/Resolved]
  - Lyme disease [Not Recovered/Not Resolved]
  - Myocardial infarction [Recovered/Resolved]
  - Injection site swelling [Recovered/Resolved]
  - Blood cholesterol increased [Recovered/Resolved]
  - Cardiovascular disorder [Recovered/Resolved]
  - B-lymphocyte count decreased [Recovered/Resolved]
  - Interleukin level increased [Unknown]
  - Bronchitis [Recovered/Resolved]
  - Aortic disorder [Recovered/Resolved]
  - Intervertebral disc protrusion [Recovering/Resolving]
  - Herpes zoster [Recovered/Resolved]
  - Lymph node pain [Recovered/Resolved]
  - Uhthoff^s phenomenon [Not Recovered/Not Resolved]
  - Pelvic pain [Recovered/Resolved]
  - Vaginal infection [Recovered/Resolved]
  - Hyperhidrosis [Recovered/Resolved]
  - Fall [Unknown]
  - Granuloma annulare [Not Recovered/Not Resolved]
  - Urticaria [Recovered/Resolved]
  - Haematoma [Recovered/Resolved]
  - Depressed mood [Recovered/Resolved]
  - Sensory disturbance [Not Recovered/Not Resolved]
  - Muscular weakness [Recovered/Resolved]
  - Pain in extremity [Not Recovered/Not Resolved]
  - Epistaxis [Recovered/Resolved]
  - Fatigue [Recovered/Resolved]
  - Paraesthesia [Recovering/Resolving]
  - Chills [Recovered/Resolved]
  - Headache [Unknown]
  - Nasopharyngitis [Recovering/Resolving]
  - Myalgia [Not Recovered/Not Resolved]
  - Diarrhoea [Recovered/Resolved]
  - Asthenia [Recovered/Resolved]
  - Arthralgia [Recovered/Resolved]
  - Illness [Not Recovered/Not Resolved]
  - Erythema [Recovered/Resolved]
  - COVID-19 [Recovered/Resolved]
  - Product administration error [Unknown]
  - Urinary incontinence [Not Recovered/Not Resolved]
  - Back pain [Not Recovered/Not Resolved]
  - Oropharyngeal pain [Recovered/Resolved]
  - Taste disorder [Recovered/Resolved]
  - B-lymphocyte abnormalities [Recovered/Resolved]
  - Disturbance in attention [Not Recovered/Not Resolved]
  - Hypertension [Unknown]
  - Granulocyte count increased [Recovered/Resolved]
  - Dyspnoea [Unknown]
  - Eosinophil count increased [Recovered/Resolved]

NARRATIVE: CASE EVENT DATE: 20180822
